FAERS Safety Report 10075231 (Version 1)
Quarter: 2014Q2

REPORT INFORMATION
  Report Type: Spontaneous
  Country: US (occurrence: US)
  Receive Date: 20140414
  Receipt Date: 20140414
  Transmission Date: 20141212
  Serious: No
  Sender: FDA-Public Use
  Company Number: US-BIOGENIDEC-2014BI030198

PATIENT
  Age: 65 Year
  Sex: Female

DRUGS (8)
  1. TECFIDERA [Suspect]
     Indication: MULTIPLE SCLEROSIS
     Route: 048
     Dates: start: 20140218
  2. ASTEPRO [Concomitant]
  3. CITALOPRAM HYDROBROMIDE [Concomitant]
  4. FROVA [Concomitant]
  5. IBUPROFEN [Concomitant]
  6. MAGNESIUM GLUCONATE [Concomitant]
  7. MAGNESIUM [Concomitant]
  8. VITAL-D RX [Concomitant]

REACTIONS (2)
  - Fatigue [Unknown]
  - Abdominal pain [Unknown]
